FAERS Safety Report 21694687 (Version 13)
Quarter: 2025Q4

REPORT INFORMATION
  Report Type: Report from Study
  Country: EU (occurrence: EU)
  Receive Date: 20221207
  Receipt Date: 20251226
  Transmission Date: 20260117
  Serious: Yes (Hospitalization, Other)
  Sender: DAIICHI
  Company Number: EU-ROCHE-3017431

PATIENT
  Age: 48 Year
  Sex: Female
  Weight: 58 kg

DRUGS (72)
  1. ENHERTU [Suspect]
     Active Substance: FAM-TRASTUZUMAB DERUXTECAN-NXKI
     Indication: HER2 positive breast cancer
     Dosage: 5.4 MG/KG, ONCE EVERY 3 WK (MOST RECENT DOSE PRIOR TO AE 31-JAN-2022 1 TIMES IN 3 WEEK)
     Route: 042
     Dates: start: 20220110, end: 20220131
  2. ENHERTU [Suspect]
     Active Substance: FAM-TRASTUZUMAB DERUXTECAN-NXKI
     Dosage: 3.2 MG/KG, ONCE EVERY 3 WK
     Route: 042
     Dates: start: 20220324, end: 20220324
  3. ENHERTU [Suspect]
     Active Substance: FAM-TRASTUZUMAB DERUXTECAN-NXKI
     Dosage: 4.4 MG/KG, ONCE EVERY 3 WK (4.4 MG/KG, Q3WK, SINGLE 3 WEEKS)
     Route: 042
     Dates: start: 20220419
  4. PERTUZUMAB [Suspect]
     Active Substance: PERTUZUMAB
     Indication: HER2 positive breast cancer
     Dosage: 420 MG, ONCE EVERY 3 WK (MOST RECENT DOSE PRIOR TO AE: 12-SEP-2019)
     Route: 042
     Dates: start: 20190724, end: 20190912
  5. CAPECITABINE [Suspect]
     Active Substance: CAPECITABINE
     Indication: HER2 positive breast cancer
     Dosage: 500 MG (FREQUENCY: OTHER SIX TIMES A DAY FOR 14 DAYS, 7 DAYS BREAK)
     Route: 048
     Dates: start: 20200923, end: 20201220
  6. CAPECITABINE [Suspect]
     Active Substance: CAPECITABINE
     Dosage: 500 MG, QID (MOST RECENT DOSE PRIOR TO AE 09-DEC-2021, 22-MAR-2021)
     Route: 048
     Dates: start: 20210109
  7. CAPECITABINE [Suspect]
     Active Substance: CAPECITABINE
     Dosage: 500 MG, QID (MOST RECENT DOSE PRIOR TO AE 09-DEC-2021, 22-MAR-2021)
     Route: 048
     Dates: start: 20210109
  8. XGEVA [Suspect]
     Active Substance: DENOSUMAB
     Indication: Product used for unknown indication
     Dosage: UNK
     Route: 065
     Dates: start: 20191011
  9. TYKERB [Suspect]
     Active Substance: LAPATINIB DITOSYLATE
     Indication: HER2 positive breast cancer
     Dosage: 250 MG, QD (250 MG, QD, MOST RECENT DOSE PRIOR TO THE EVENT: 09-JAN-2021 250 MG, 5 TIMES DAILY)
     Route: 048
     Dates: start: 20200923, end: 20201228
  10. TYKERB [Suspect]
     Active Substance: LAPATINIB DITOSYLATE
     Dosage: 250 MG (250 MILLIGRAM, QID, MOST RECENT DOSE PRIOR TO AE 16-DEC-2021)
     Route: 048
     Dates: start: 20210109, end: 20211216
  11. TYKERB [Suspect]
     Active Substance: LAPATINIB DITOSYLATE
     Dosage: 250 MG (MOST RECENT DOSE PRIOR TO AE 16/DEC/2021)
     Route: 048
     Dates: start: 20210109, end: 20211216
  12. KADCYLA [Suspect]
     Active Substance: ADO-TRASTUZUMAB EMTANSINE
     Indication: HER2 positive breast cancer
     Dosage: 3.6 MILLIGRAM/KILOGRAM, Q3WK, 1 TIMES IN 3 WEEK
     Route: 042
     Dates: start: 20191014, end: 20200518
  13. KADCYLA [Suspect]
     Active Substance: ADO-TRASTUZUMAB EMTANSINE
     Dosage: 2.88 MILLIGRAM/KILOGRAM, Q3WK, MOST RECENT DOSE PRIOR TO AE 03-JUL-2020
     Route: 042
     Dates: start: 20200703, end: 20200703
  14. TAXOL [Suspect]
     Active Substance: PACLITAXEL
     Indication: HER2 positive breast cancer
     Dosage: 260 MG/M2, ONCE EVERY 3 WK(260 MILLIGRAM/SQ. METER, Q3WK, MOST RECENT DOSE PRIOR TO AE 12-SEP-2019)
     Route: 042
     Dates: start: 20190724, end: 20190912
  15. TUCATINIB [Suspect]
     Active Substance: TUCATINIB
     Indication: HER2 positive breast cancer
     Dosage: 300 MG (300 MG, QD, MOST RECENT DOSE PRIOR TO THE EVENT: 22-JAN-2023)
     Route: 048
     Dates: start: 20230102
  16. HERCEPTIN [Suspect]
     Active Substance: TRASTUZUMAB
     Indication: HER2 positive breast cancer
     Dosage: 6 MG/KG, ONCE EVERY 3 WK
     Route: 042
     Dates: start: 20190724, end: 20190912
  17. HERCEPTIN [Suspect]
     Active Substance: TRASTUZUMAB
     Dosage: 6 MG/KG, ONCE EVERY 3 WK
     Route: 042
     Dates: end: 20230206
  18. NEULASTA [Suspect]
     Active Substance: PEGFILGRASTIM
     Indication: Product used for unknown indication
     Dosage: UNK
     Route: 065
     Dates: start: 20220420
  19. ADO-TRASTUZUMAB EMTANSINE [Suspect]
     Active Substance: ADO-TRASTUZUMAB EMTANSINE
     Indication: HER2 positive breast cancer
     Dosage: 3.6 MG/KG, ONCE EVERY 3 WK (1 TIMES IN 3 WEEK)
     Route: 042
     Dates: start: 20191014, end: 20200518
  20. ADO-TRASTUZUMAB EMTANSINE [Suspect]
     Active Substance: ADO-TRASTUZUMAB EMTANSINE
     Dosage: 2.88 MG/KG, ONCE EVERY 3 WK (1 TIMES IN 3 WEEK)
     Route: 042
     Dates: start: 20200703, end: 20200703
  21. ALPRAZOLAM [Concomitant]
     Active Substance: ALPRAZOLAM
     Indication: Product used for unknown indication
     Dosage: 0.5 MG, AS NEEDED (0.5 MILLIGRAM, AS NECESSARY)
     Route: 048
     Dates: start: 20190715
  22. AMOXICILLIN\CLAVULANATE POTASSIUM [Concomitant]
     Active Substance: AMOXICILLIN\CLAVULANATE POTASSIUM
     Indication: Influenza
     Dosage: 875 MG, BID (EVERY 0.5 DAY)
     Route: 048
     Dates: start: 20200527, end: 20200602
  23. CALCIDURAN [ASCORBIC ACID;CALCIUM PHOSPHATE;CITRIC ACID;COLECALCIFEROL [Concomitant]
     Indication: Product used for unknown indication
     Dosage: 500 MG
     Route: 048
     Dates: start: 20190717
  24. CEOLAT [Concomitant]
     Indication: Product used for unknown indication
     Dosage: 1 G, TID (1 GRAM, OTHER UP TO 3 X DAILY 10 ML)
     Route: 048
     Dates: start: 20190815
  25. CITALOPRAM [Concomitant]
     Active Substance: CITALOPRAM
     Indication: Product used for unknown indication
     Dosage: 20 MG, QD (20 MILLIGRAM, QD)
     Route: 048
     Dates: start: 20190715
  26. DRONABINOL [Concomitant]
     Active Substance: DRONABINOL
     Indication: Product used for unknown indication
     Dosage: 2.5 % (2.5 %, 2 DROP-2 DROP-2 DROP)
     Route: 048
     Dates: start: 20190716, end: 20210804
  27. DRONABINOL [Concomitant]
     Active Substance: DRONABINOL
     Dosage: 2.5 PERCENT
     Route: 048
     Dates: start: 20210705
  28. EMEND [Concomitant]
     Active Substance: APREPITANT
     Indication: Product used for unknown indication
     Dosage: 80 MG
     Route: 048
     Dates: start: 20220621
  29. EMEND [Concomitant]
     Active Substance: APREPITANT
     Dosage: 125 MG
     Route: 048
     Dates: start: 20220621
  30. LOPERAMIDE HYDROCHLORIDE [Concomitant]
     Active Substance: LOPERAMIDE HYDROCHLORIDE
     Indication: Diarrhoea
     Dosage: UNK, AS NECESSARY
     Route: 048
     Dates: start: 20210215
  31. EUTHYROX [Concomitant]
     Active Substance: LEVOTHYROXINE SODIUM
     Indication: Product used for unknown indication
     Dosage: 75 UG, QD (75 MICROGRAM, QD)
     Route: 048
     Dates: start: 201906, end: 201906
  32. EUTHYROX [Concomitant]
     Active Substance: LEVOTHYROXINE SODIUM
     Dosage: 50 UG, QD (50 DOSAGE FORM, QD)
     Route: 048
     Dates: start: 20190703, end: 20200929
  33. EUTHYROX [Concomitant]
     Active Substance: LEVOTHYROXINE SODIUM
     Dosage: 25 UG, QD (25 MICROGRAM, QD)
     Route: 048
     Dates: start: 20200930, end: 20210108
  34. FERRETAB [FERROUS FUMARATE] [Concomitant]
     Indication: Product used for unknown indication
     Dosage: UNK
     Route: 065
  35. POLYETHYLENE GLYCOL 4000 [Concomitant]
     Active Substance: POLYETHYLENE GLYCOL 4000
     Indication: Product used for unknown indication
     Dosage: 10 G (10 GRAM/ 3 DAYS)
     Route: 048
     Dates: start: 20190705
  36. DEXAMETHASONE [Concomitant]
     Active Substance: DEXAMETHASONE
     Indication: Intracranial pressure increased
     Dosage: 8 MG
     Route: 042
     Dates: start: 20190704, end: 20190912
  37. DEXAMETHASONE [Concomitant]
     Active Substance: DEXAMETHASONE
     Indication: COVID-19
     Dosage: 8 MG
     Route: 048
     Dates: start: 20190705, end: 20190914
  38. DEXAMETHASONE [Concomitant]
     Active Substance: DEXAMETHASONE
     Indication: Intracranial pressure increased
     Dosage: 6 MG
     Route: 048
     Dates: start: 20210302, end: 20210304
  39. DEXAMETHASONE [Concomitant]
     Active Substance: DEXAMETHASONE
     Dosage: 18 MG
     Route: 048
     Dates: start: 20211229, end: 20220110
  40. DEXAMETHASONE [Concomitant]
     Active Substance: DEXAMETHASONE
     Dosage: 8 MG, ONCE EVERY 3 WK
     Route: 042
     Dates: start: 20220110
  41. DEXAMETHASONE [Concomitant]
     Active Substance: DEXAMETHASONE
     Dosage: 18 MG
     Route: 065
     Dates: start: 20220111, end: 20220112
  42. DEXAMETHASONE [Concomitant]
     Active Substance: DEXAMETHASONE
     Dosage: 18 MG
     Route: 065
     Dates: start: 20220113, end: 20220114
  43. DEXAMETHASONE [Concomitant]
     Active Substance: DEXAMETHASONE
     Dosage: 18 MG
     Route: 065
     Dates: start: 20220115, end: 20220323
  44. DEXAMETHASONE [Concomitant]
     Active Substance: DEXAMETHASONE
     Dosage: 8 MG
     Route: 048
     Dates: start: 20220622
  45. ORNITHINE ASPARTATE [Concomitant]
     Active Substance: ORNITHINE ASPARTATE
     Indication: Product used for unknown indication
     Dosage: UNK
     Route: 065
     Dates: start: 20220401, end: 20220419
  46. HYDROMORPHONE HYDROCHLORIDE [Concomitant]
     Active Substance: HYDROMORPHONE HYDROCHLORIDE
     Indication: Product used for unknown indication
     Dosage: 1.3 MG, AS NEEDED
     Route: 048
     Dates: start: 20190716
  47. HYDROMORPHONE HYDROCHLORIDE [Concomitant]
     Active Substance: HYDROMORPHONE HYDROCHLORIDE
     Dosage: 2 MG, BID (2 MILLIGRAM, BID, 2 TIMES IN 1 DAY)
     Route: 048
     Dates: start: 20190716, end: 20200927
  48. HYDROMORPHONE HYDROCHLORIDE [Concomitant]
     Active Substance: HYDROMORPHONE HYDROCHLORIDE
     Dosage: 2 MG, BID (2 MILLIGRAM, QD, 2 TIMES IN 1 DAY)
     Route: 048
     Dates: start: 20220207
  49. LACTULOSE [Concomitant]
     Active Substance: LACTULOSE
     Indication: Product used for unknown indication
     Dosage: UNK
     Route: 065
  50. LENDORM [Concomitant]
     Active Substance: BROTIZOLAM
     Indication: Insomnia
     Dosage: 0.25 MG, AS NEEDED (0.25 MILLIGRAM, AS NECESSARY)
     Route: 048
     Dates: start: 20211229, end: 20211229
  51. LOVENOX [Concomitant]
     Active Substance: ENOXAPARIN SODIUM
     Indication: COVID-19
     Dosage: 40 MG, QD
     Route: 030
     Dates: start: 20210302, end: 20210305
  52. ACETAMINOPHEN [Concomitant]
     Active Substance: ACETAMINOPHEN
     Indication: Product used for unknown indication
     Dosage: 500 MILLIGRAM, AS NECESSARY
     Route: 048
     Dates: start: 20190701
  53. NEURONTIN [Concomitant]
     Active Substance: GABAPENTIN
     Indication: Product used for unknown indication
     Dosage: 300 MG, BID (2 TIMES IN 1 DAY, EVERY 0.5 DAY)
     Route: 048
     Dates: start: 201908, end: 201908
  54. OLANZAPINE [Concomitant]
     Active Substance: OLANZAPINE
     Indication: Product used for unknown indication
     Dosage: 10 MG (10 MILLIGRAM,OTHER 0-0-1/2)
     Route: 048
     Dates: start: 20190821, end: 20190904
  55. OLANZAPINE [Concomitant]
     Active Substance: OLANZAPINE
     Dosage: 10 MG (10 MILLIGRAM,OTHER 0-0-1/2)
     Route: 048
     Dates: start: 20190904, end: 20190926
  56. PANTOPRAZOLE SODIUM [Concomitant]
     Active Substance: PANTOPRAZOLE SODIUM
     Indication: COVID-19
     Dosage: 40 MILLIGRAM, QD
     Route: 048
     Dates: start: 20190701
  57. PANTOPRAZOLE SODIUM [Concomitant]
     Active Substance: PANTOPRAZOLE SODIUM
     Dosage: 40 MG, QD (40 MILLIGRAM, QD)
     Route: 048
     Dates: start: 20210222, end: 20210302
  58. PANTOPRAZOLE SODIUM [Concomitant]
     Active Substance: PANTOPRAZOLE SODIUM
     Dosage: 40 MG
     Route: 065
     Dates: start: 20210302, end: 20210303
  59. ACETAMINOPHEN [Concomitant]
     Active Substance: ACETAMINOPHEN
     Indication: COVID-19
     Dosage: 1 G, AS NEEDED (1 GRAM, AS NECESSARY)
     Route: 048
     Dates: start: 20210302, end: 20210303
  60. PFIZER-BIONTECH COVID-19 VACCINE [Concomitant]
     Active Substance: TOZINAMERAN
     Indication: Product used for unknown indication
     Dosage: UNK
     Route: 065
     Dates: start: 20220125, end: 20220125
  61. FILGRASTIM [Concomitant]
     Active Substance: FILGRASTIM
     Indication: Product used for unknown indication
     Dosage: UNK, 2 DAY
     Route: 065
     Dates: start: 20220420, end: 20220421
  62. SUCRALAN [Concomitant]
     Indication: Product used for unknown indication
     Dosage: 1 G, AS NEEDED (1 GRAM, AS NECESSARY)
     Route: 048
     Dates: start: 20190701
  63. TRAZODONE HYDROCHLORIDE [Concomitant]
     Active Substance: TRAZODONE HYDROCHLORIDE
     Indication: Product used for unknown indication
     Dosage: 150 MG, QD (150 MILLIGRAM, QD)
     Route: 048
     Dates: start: 20190716, end: 20200926
  64. SULTAMICILLIN [Concomitant]
     Active Substance: SULTAMICILLIN
     Indication: Product used for unknown indication
     Dosage: UNK
     Route: 065
     Dates: start: 20220919
  65. URSODIOL [Concomitant]
     Active Substance: URSODIOL
     Indication: Gamma-glutamyltransferase increased
     Dosage: UNK
     Route: 065
     Dates: start: 20220401
  66. VALACYCLOVIR HYDROCHLORIDE [Concomitant]
     Active Substance: VALACYCLOVIR HYDROCHLORIDE
     Indication: Product used for unknown indication
     Dosage: 500 MG, QD
     Route: 048
     Dates: start: 20190716, end: 20191011
  67. ZOFRAN [Concomitant]
     Active Substance: ONDANSETRON HYDROCHLORIDE
     Indication: COVID-19
     Dosage: 8 MG, AS NEEDED (8 MILLIGRAM, AS NECESSARY)
     Route: 048
     Dates: start: 20190701
  68. ZOFRAN [Concomitant]
     Active Substance: ONDANSETRON HYDROCHLORIDE
     Dosage: 8 MG, AS NEEDED (8 MILLIGRAM, AS NECESSARY)
     Route: 042
     Dates: start: 20190704, end: 20200703
  69. ZOFRAN [Concomitant]
     Active Substance: ONDANSETRON HYDROCHLORIDE
     Dosage: 8 MG, BID (2 TIMES IN 1 DAY, EVERY 0.5 DAY)
     Route: 067
     Dates: start: 20190705, end: 20190914
  70. ZOFRAN [Concomitant]
     Active Substance: ONDANSETRON HYDROCHLORIDE
     Dosage: 4 MG, QD
     Route: 048
     Dates: start: 20210302, end: 20210302
  71. ZOFRAN [Concomitant]
     Active Substance: ONDANSETRON HYDROCHLORIDE
     Dosage: 8 MG, ONCE EVERY 3 WK (1 TIMES IN 3 WEEK)
     Route: 042
     Dates: start: 20220110
  72. LEVOTHYROXINE SODIUM [Concomitant]
     Active Substance: LEVOTHYROXINE SODIUM
     Indication: Product used for unknown indication
     Dosage: UNK
     Route: 065

REACTIONS (18)
  - Iron deficiency anaemia [Recovered/Resolved]
  - Neutropenia [Recovered/Resolved]
  - Vascular device infection [Recovered/Resolved]
  - Thrombocytopenia [Not Recovered/Not Resolved]
  - Insomnia [Not Recovered/Not Resolved]
  - COVID-19 [Recovered/Resolved]
  - Intracranial pressure increased [Recovered/Resolved]
  - Gamma-glutamyltransferase increased [Recovered/Resolved]
  - Diarrhoea [Recovered/Resolved]
  - Blood bilirubin increased [Recovered/Resolved]
  - Blood bilirubin increased [Recovered/Resolved]
  - General physical health deterioration [Recovered/Resolved]
  - Aphthous ulcer [Recovered/Resolved]
  - Asthenia [Recovered/Resolved]
  - Neutrophil count decreased [Recovered/Resolved]
  - COVID-19 [Recovered/Resolved]
  - Platelet count decreased [Recovered/Resolved]
  - COVID-19 [Recovered/Resolved]

NARRATIVE: CASE EVENT DATE: 20201228
